FAERS Safety Report 11742802 (Version 1)
Quarter: 2015Q4

REPORT INFORMATION
  Report Type: Spontaneous
  Country: US (occurrence: US)
  Receive Date: 20151116
  Receipt Date: 20151116
  Transmission Date: 20160304
  Serious: No
  Sender: FDA-Public Use
  Company Number: US-UPSHER-SMITH LABORATORIES, INC.-15002478

PATIENT
  Age: 73 Year
  Sex: Male

DRUGS (9)
  1. ACETAMINOPHEN. [Suspect]
     Active Substance: ACETAMINOPHEN
     Indication: PRODUCT USED FOR UNKNOWN INDICATION
     Dosage: UNK, UNK
     Route: 048
  2. JANTOVEN [Suspect]
     Active Substance: WARFARIN SODIUM
     Indication: FACTOR V LEIDEN MUTATION
     Dosage: 5 MG ALTERNATING WITH 7.5 MG, QD
     Route: 048
     Dates: start: 201509
  3. LISINOPRIL. [Concomitant]
     Active Substance: LISINOPRIL
     Indication: ANGER
     Dosage: UNK
  4. WARFARIN SODIUM. [Suspect]
     Active Substance: WARFARIN SODIUM
     Indication: FACTOR V LEIDEN MUTATION
     Dosage: 5 MG ALTERNATING WITH 7.5 MG, QD
     Route: 048
     Dates: start: 2000, end: 201509
  5. LYCOPENE [Concomitant]
     Active Substance: LYCOPENE
     Dosage: UNK
  6. FOLIC ACID. [Concomitant]
     Active Substance: FOLIC ACID
     Dosage: UNK
  7. VITAMIN C [Concomitant]
     Active Substance: ASCORBIC ACID
     Dosage: UNK
  8. VITAMIN D3 [Concomitant]
     Active Substance: CHOLECALCIFEROL
     Dosage: UNK
  9. MULTIVITAMIN [Concomitant]
     Active Substance: VITAMINS
     Dosage: UNK

REACTIONS (5)
  - Wound secretion [Recovered/Resolved]
  - Inflammation [Not Recovered/Not Resolved]
  - Scab [Recovered/Resolved]
  - International normalised ratio increased [Unknown]
  - Drug interaction [Recovered/Resolved]

NARRATIVE: CASE EVENT DATE: 20150917
